FAERS Safety Report 14474216 (Version 2)
Quarter: 2018Q1

REPORT INFORMATION
  Report Type: Spontaneous
  Country: US (occurrence: US)
  Receive Date: 20180201
  Receipt Date: 20180308
  Transmission Date: 20180509
  Serious: No
  Sender: FDA-Public Use
  Company Number: US-MERZ NORTH AMERICA, INC.-18MRZ-00051

PATIENT
  Sex: Female
  Weight: 57.2 kg

DRUGS (3)
  1. XEOMIN [Suspect]
     Active Substance: INCOBOTULINUMTOXINA
     Indication: SKIN WRINKLING
  2. XEOMIN [Suspect]
     Active Substance: INCOBOTULINUMTOXINA
     Indication: SKIN WRINKLING
     Dosage: 46 TOTAL UNITS: GLABELLA 20 UNITS, FRONTALIS 12 UNITS, CROW^S FEET 12 UNITS, AND NASALIS 2 UNITS
     Route: 030
     Dates: start: 20171201, end: 20171201
  3. XEOMIN [Suspect]
     Active Substance: INCOBOTULINUMTOXINA
     Indication: SKIN COSMETIC PROCEDURE

REACTIONS (1)
  - Drug ineffective [Unknown]
